FAERS Safety Report 20939874 (Version 1)
Quarter: 2022Q2

REPORT INFORMATION
  Report Type: Spontaneous
  Country: US (occurrence: US)
  Receive Date: 20220609
  Receipt Date: 20220609
  Transmission Date: 20220720
  Serious: No
  Sender: FDA-Public Use
  Company Number: US-BRISTOL-MYERS SQUIBB COMPANY-2022-045394

PATIENT
  Age: 74 Year
  Sex: Female
  Weight: 80.2 kg

DRUGS (1)
  1. REVLIMID [Suspect]
     Active Substance: LENALIDOMIDE
     Indication: Plasma cell myeloma
     Dosage: FREQUENCY: 3W, 1W OFF
     Route: 048
     Dates: start: 20220301

REACTIONS (4)
  - Urinary tract infection [Unknown]
  - Platelet count decreased [Recovered/Resolved]
  - Bacterial infection [Unknown]
  - Oral candidiasis [Unknown]
